FAERS Safety Report 20232564 (Version 1)
Quarter: 2021Q4

REPORT INFORMATION
  Report Type: Spontaneous
  Country: US (occurrence: US)
  Receive Date: 20211227
  Receipt Date: 20211227
  Transmission Date: 20220303
  Serious: No
  Sender: FDA-Public Use
  Company Number: US-GLAXOSMITHKLINE-US2021AMR262244

PATIENT
  Sex: Female

DRUGS (1)
  1. BENLYSTA [Suspect]
     Active Substance: BELIMUMAB
     Indication: Glomerular vascular disorder
     Dosage: 200 MG/ML, WE (INJECT 1ML  INTO THE SKIN)

REACTIONS (1)
  - Product dose omission issue [Unknown]
